FAERS Safety Report 10529692 (Version 1)
Quarter: 2014Q4

REPORT INFORMATION
  Report Type: Spontaneous
  Country: US (occurrence: US)
  Receive Date: 20141021
  Receipt Date: 20141021
  Transmission Date: 20150528
  Serious: Yes (Death, Hospitalization)
  Sender: FDA-Public Use
  Company Number: US-ACCORD-026520

PATIENT
  Age: 43 Year
  Sex: Female
  Weight: 63 kg

DRUGS (4)
  1. PROPRANOLOL [Suspect]
     Active Substance: PROPRANOLOL\PROPRANOLOL HYDROCHLORIDE
     Dosage: TOTAL DOSE 12 G - UNACCOUNTED
  2. ZOLPIDEM [Suspect]
     Active Substance: ZOLPIDEM\ZOLPIDEM TARTRATE
     Dosage: TOTAL DOSE 200 MG - UNACCOUNTED
  3. ALPRAZOLAM. [Suspect]
     Active Substance: ALPRAZOLAM
     Dosage: TOTAL DOSE 15 MG - UNACCOUNTED
  4. TRAMADOL/TRAMADOL HYDROCHLORIDE [Suspect]
     Active Substance: TRAMADOL HYDROCHLORIDE
     Dosage: TOTAL DOSE 1.5G - UNACCOUNTED

REACTIONS (9)
  - Cardiogenic shock [Unknown]
  - Respiration abnormal [None]
  - Hypotension [Unknown]
  - Cardiac arrest [Unknown]
  - Carotid pulse abnormal [None]
  - Death [Fatal]
  - Intentional overdose [None]
  - Pulse absent [None]
  - Overdose [Unknown]
